FAERS Safety Report 25168635 (Version 1)
Quarter: 2025Q2

REPORT INFORMATION
  Report Type: Spontaneous
  Country: FR (occurrence: FR)
  Receive Date: 20250407
  Receipt Date: 20250407
  Transmission Date: 20250717
  Serious: Yes (Hospitalization)
  Sender: NOVARTIS
  Company Number: None

PATIENT
  Age: 46 Year
  Sex: Female
  Weight: 90 kg

DRUGS (1)
  1. GILENYA [Suspect]
     Active Substance: FINGOLIMOD HYDROCHLORIDE
     Indication: Relapsing-remitting multiple sclerosis
     Dosage: 0.5 MG, QD (G?LULE, 8 YEARS)
     Route: 048
     Dates: start: 20160707, end: 202411

REACTIONS (1)
  - Rebound effect [Recovering/Resolving]

NARRATIVE: CASE EVENT DATE: 20250311
